FAERS Safety Report 9032022 (Version 1)
Quarter: 2013Q1

REPORT INFORMATION
  Report Type: Spontaneous
  Country: SE (occurrence: SE)
  Receive Date: 20130125
  Receipt Date: 20130125
  Transmission Date: 20140127
  Serious: Yes (Hospitalization)
  Sender: FDA-Public Use
  Company Number: SE-SANOFI-AVENTIS-2013SA003881

PATIENT
  Age: 63 Year
  Sex: Male

DRUGS (10)
  1. JEVTANA [Suspect]
     Indication: PROSTATE CANCER
     Route: 065
     Dates: start: 20120817, end: 20121022
  2. ZOMETA [Concomitant]
  3. OMEPRAZOLE [Concomitant]
  4. FORLAX [Concomitant]
  5. MORPHINE [Concomitant]
  6. IBUPROFEN [Concomitant]
  7. DOLCONTIN [Concomitant]
  8. ALVEDON FORTE [Concomitant]
  9. CANODERM [Concomitant]
  10. SODIUM PICOSULFATE [Concomitant]
     Dosage: STRENGTH: 7.5 MG/ML

REACTIONS (3)
  - Hypocalcaemia [Recovering/Resolving]
  - Paraesthesia [Recovering/Resolving]
  - Muscle spasms [Recovering/Resolving]
